FAERS Safety Report 9006558 (Version 2)
Quarter: 2013Q1

REPORT INFORMATION
  Report Type: Spontaneous
  Country: CY (occurrence: CY)
  Receive Date: 20130110
  Receipt Date: 20130117
  Transmission Date: 20140127
  Serious: Yes (Other)
  Sender: FDA-Public Use
  Company Number: PHHY2013CY001953

PATIENT
  Age: 64 Year
  Sex: Female

DRUGS (3)
  1. AFINITOR [Suspect]
     Indication: BREAST CANCER METASTATIC
     Dosage: 10 MG/DAY
     Route: 048
     Dates: start: 20121121, end: 20121228
  2. AFINITOR [Suspect]
     Dosage: 10 MG/DAY
     Route: 048
  3. EXEMESTANE [Concomitant]
     Indication: BREAST CANCER METASTATIC
     Dosage: 25 MG, QD
     Route: 048
     Dates: start: 20121121

REACTIONS (1)
  - Hypoacusis [Recovered/Resolved]
